FAERS Safety Report 4445519-2 (Version None)
Quarter: 2004Q3

REPORT INFORMATION
  Report Type: 
  Country: None (occurrence: None)
  Receive Date: 20040910
  Receipt Date: 20040901
  Transmission Date: 20050211
  Serious: Yes (Death, Life-Threatening)
  Sender: FDA-Public Use
  Company Number: GB-JNJFOC-20040900517

PATIENT
  Sex: Male

DRUGS (14)
  1. REMICADE [Suspect]
     Indication: RHEUMATOID ARTHRITIS
     Route: 042
  2. VITAMIN B COMPLEX CAP [Concomitant]
  3. BENZYDAMINE [Concomitant]
  4. CO-CARELDOPA [Concomitant]
  5. CO-CARELDOPA [Concomitant]
  6. ADCAL [Concomitant]
  7. THIAMINE [Concomitant]
  8. LANSOPRAZOLE [Concomitant]
  9. PREDNISOLONE [Concomitant]
  10. RISEDRONATE [Concomitant]
  11. PARACETAMOL [Concomitant]
  12. CARMELLOSE [Concomitant]
  13. METHOTREXATE [Concomitant]
  14. FOLIC ACID [Concomitant]

REACTIONS (1)
  - DEATH [None]
